FAERS Safety Report 9212992 (Version 1)
Quarter: 2013Q1

REPORT INFORMATION
  Report Type: Spontaneous
  Country: US (occurrence: None)
  Receive Date: 20120820
  Receipt Date: 20120820
  Transmission Date: 20140127
  Serious: No
  Sender: FDA-Public Use
  Company Number: 1000031574

PATIENT
  Age: 70 Year
  Sex: Male

DRUGS (4)
  1. VIIBRYD [Suspect]
     Indication: DEPRESSION
     Dosage: 10 MG 1 IN 1 D
     Route: 048
     Dates: start: 20120620
  2. VIIBRYD [Suspect]
     Indication: ANXIETY
     Dosage: 10 MG 1 IN 1 D
     Route: 048
     Dates: start: 20120620
  3. MICARDIS (TELMISARTAN) (TELMISARTAN) [Concomitant]
  4. PLAVIX (CLOPIDOGREL BISULFATE) (CLOPIDGREL BISULFATE) [Concomitant]

REACTIONS (3)
  - Anxiety [None]
  - Dyspnoea [None]
  - Fatigue [None]
